FAERS Safety Report 18585590 (Version 1)
Quarter: 2020Q4

REPORT INFORMATION
  Report Type: Spontaneous
  Country: FR (occurrence: FR)
  Receive Date: 20201207
  Receipt Date: 20201207
  Transmission Date: 20210114
  Serious: Yes (Other)
  Sender: FDA-Public Use
  Company Number: NVSC2020FR319554

PATIENT
  Age: 49 Year
  Sex: Female
  Weight: 81.55 kg

DRUGS (1)
  1. GILENYA [Suspect]
     Active Substance: FINGOLIMOD HYDROCHLORIDE
     Indication: MULTIPLE SCLEROSIS
     Dosage: 1 DF, QD
     Route: 048
     Dates: start: 20191114, end: 20201119

REACTIONS (2)
  - Lymphopenia [Not Recovered/Not Resolved]
  - Rectal neoplasm [Not Recovered/Not Resolved]

NARRATIVE: CASE EVENT DATE: 20191218
